FAERS Safety Report 4979626-2 (Version None)
Quarter: 2006Q2

REPORT INFORMATION
  Report Type: 
  Country: None (occurrence: None)
  Receive Date: 20060421
  Receipt Date: 20060224
  Transmission Date: 20061013
  Serious: Yes (Hospitalization, Other)
  Sender: FDA-Public Use
  Company Number: ES-BRISTOL-MYERS SQUIBB COMPANY-13295050

PATIENT
  Age: 54 Year
  Sex: Male

DRUGS (5)
  1. ORENCIA [Suspect]
     Indication: RHEUMATOID ARTHRITIS
     Route: 042
     Dates: start: 20040512
  2. ASPIRIN [Concomitant]
     Dates: start: 20051123, end: 20060222
  3. METHOTREXATE [Concomitant]
     Dates: start: 20040121, end: 20060227
  4. FOLIC ACID [Concomitant]
     Dates: start: 20050706, end: 20060227
  5. DEFLAZACORT [Concomitant]
     Dates: start: 20060110, end: 20060227

REACTIONS (2)
  - DEEP VEIN THROMBOSIS [None]
  - PULMONARY EMBOLISM [None]
